FAERS Safety Report 20318192 (Version 1)
Quarter: 2022Q1

REPORT INFORMATION
  Report Type: Spontaneous
  Country: MY (occurrence: MY)
  Receive Date: 20220110
  Receipt Date: 20220110
  Transmission Date: 20220423
  Serious: Yes (Hospitalization)
  Sender: FDA-Public Use
  Company Number: MY-JNJFOC-20220107372

PATIENT
  Age: 75 Year
  Sex: Female

DRUGS (3)
  1. ESKETAMINE [Suspect]
     Active Substance: ESKETAMINE
     Indication: Depression
  2. ESKETAMINE [Suspect]
     Active Substance: ESKETAMINE
     Indication: Major depression
  3. ESKETAMINE [Suspect]
     Active Substance: ESKETAMINE
     Indication: Suicidal ideation
     Dates: start: 20220104, end: 20220104

REACTIONS (2)
  - Restlessness [Unknown]
  - Anxiety [Unknown]
